FAERS Safety Report 20038286 (Version 2)
Quarter: 2021Q4

REPORT INFORMATION
  Report Type: Spontaneous
  Country: GB (occurrence: GB)
  Receive Date: 20211105
  Receipt Date: 20211203
  Transmission Date: 20220303
  Serious: Yes (Disabling, Other)
  Sender: FDA-Public Use
  Company Number: ENDG21-07099

PATIENT
  Age: 22 Year
  Sex: Female
  Weight: 60 kg

DRUGS (1)
  1. FLUOXETINE HYDROCHLORIDE [Suspect]
     Active Substance: FLUOXETINE HYDROCHLORIDE
     Indication: Ill-defined disorder
     Dosage: 20 MG, UNKNOWN
     Route: 048
     Dates: start: 20190401, end: 20210616

REACTIONS (6)
  - Genital anaesthesia [Not Recovered/Not Resolved]
  - Feeling of despair [Unknown]
  - Loss of libido [Not Recovered/Not Resolved]
  - Anorgasmia [Not Recovered/Not Resolved]
  - Suicidal ideation [Unknown]
  - Medication error [Unknown]

NARRATIVE: CASE EVENT DATE: 20210624
